FAERS Safety Report 14495052 (Version 2)
Quarter: 2018Q2

REPORT INFORMATION
  Report Type: Spontaneous
  Country: PT (occurrence: PT)
  Receive Date: 20180206
  Receipt Date: 20180507
  Transmission Date: 20180711
  Serious: Yes (Life-Threatening, Hospitalization)
  Sender: FDA-Public Use
  Company Number: PT-PFIZER INC-2018046735

PATIENT
  Age: 54 Year
  Sex: Male

DRUGS (3)
  1. SIMVASTATIN. [Concomitant]
     Active Substance: SIMVASTATIN
     Dosage: UNK
     Route: 048
  2. FOLIC ACID. [Concomitant]
     Active Substance: FOLIC ACID
     Dosage: 5 MG, WEEKLY
     Route: 048
     Dates: start: 20171106
  3. LEDERTREXATO [Suspect]
     Active Substance: METHOTREXATE SODIUM
     Indication: PSORIASIS
     Dosage: 15 MG, 1X/DAY
     Route: 048
     Dates: start: 20171106, end: 20171114

REACTIONS (10)
  - Pancytopenia [Unknown]
  - Coagulopathy [Unknown]
  - Petechiae [Unknown]
  - Cardiovascular disorder [Recovered/Resolved]
  - Renal impairment [Recovered/Resolved]
  - Pneumonia [Recovered/Resolved]
  - Medication error [Unknown]
  - Product use in unapproved indication [Recovered/Resolved]
  - Mucosal inflammation [Recovered/Resolved]
  - Febrile neutropenia [Recovered/Resolved]

NARRATIVE: CASE EVENT DATE: 20171106
